FAERS Safety Report 9433927 (Version 2)
Quarter: 2013Q3

REPORT INFORMATION
  Report Type: Spontaneous
  Country: FR (occurrence: FR)
  Receive Date: 20130801
  Receipt Date: 20130918
  Transmission Date: 20140515
  Serious: Yes (Hospitalization, Other)
  Sender: FDA-Public Use
  Company Number: FR-ROCHE-1255473

PATIENT
  Sex: Male

DRUGS (9)
  1. LUCENTIS [Suspect]
     Indication: PRODUCT USED FOR UNKNOWN INDICATION
     Route: 050
     Dates: start: 20130606
  2. ZESTRIL [Concomitant]
  3. VASTEN [Concomitant]
  4. GLUCOPHAGE [Concomitant]
     Route: 065
  5. AMAREL [Concomitant]
  6. INSULIN [Concomitant]
  7. PARACETAMOL [Concomitant]
  8. ZYLORIC [Concomitant]
  9. GLUCOR [Concomitant]

REACTIONS (1)
  - Cerebrovascular accident [Unknown]
